FAERS Safety Report 5265213-8 (Version None)
Quarter: 2007Q1

REPORT INFORMATION
  Report Type: 
  Country: None (occurrence: None)
  Receive Date: 20061213
  Receipt Date: 20040526
  Transmission Date: 20070707
  Serious: Yes (Other)
  Sender: FDA-Public Use
  Company Number: 2004UW11016

PATIENT
  Age: 77 Year
  Sex: Female
  Weight: 56.6996 kg

DRUGS (5)
  1. IRESSA [Suspect]
     Indication: NON-SMALL CELL LUNG CANCER
  2. NORVASC [Concomitant]
  3. PREVACID [Concomitant]
  4. VITAMIN B-12 [Concomitant]
  5. YEAST INFECTION CREAM [Concomitant]

REACTIONS (2)
  - APHTHOUS STOMATITIS [None]
  - FUNGAL INFECTION [None]
